FAERS Safety Report 6555026-9 (Version None)
Quarter: 2010Q1

REPORT INFORMATION
  Report Type: 
  Country: None (occurrence: None)
  Receive Date: 20100126
  Receipt Date: 20100126
  Transmission Date: 20100710
  Serious: Yes (Other)
  Sender: FDA-Public Use
  Company Number: None

PATIENT
  Age: 60 Year
  Sex: Female
  Weight: 65.7716 kg

DRUGS (3)
  1. TERBINAFINE HCL [Suspect]
     Indication: ONYCHOMYCOSIS
     Dosage: 1 TABLET 1 TIME/DAY
     Dates: start: 20091201, end: 20100115
  2. LEVOTHYROXINE SODIUM [Concomitant]
  3. VIVELLE DOT ESTROGEN PACTH [Concomitant]

REACTIONS (1)
  - DYSGEUSIA [None]
